FAERS Safety Report 13386603 (Version 2)
Quarter: 2017Q2

REPORT INFORMATION
  Report Type: Spontaneous
  Country: US (occurrence: US)
  Receive Date: 20170330
  Receipt Date: 20170425
  Transmission Date: 20170830
  Serious: No
  Sender: FDA-Public Use
  Company Number: US-PFIZER INC-2017133324

PATIENT
  Age: 50 Year
  Sex: Female
  Weight: 90.7 kg

DRUGS (15)
  1. REMICADE [Concomitant]
     Active Substance: INFLIXIMAB
     Dosage: UNK
     Dates: start: 2008
  2. CELECOXIB. [Suspect]
     Active Substance: CELECOXIB
     Indication: RHEUMATOID ARTHRITIS
     Dosage: 200 MG, 2X/DAY
     Route: 048
     Dates: start: 201601, end: 201606
  3. CELEBREX [Concomitant]
     Active Substance: CELECOXIB
     Dosage: UNK
     Dates: start: 2008
  4. CELECOXIB. [Suspect]
     Active Substance: CELECOXIB
     Dosage: 200 MG, 2X/DAY
     Route: 048
     Dates: start: 201601, end: 201607
  5. CYMBALTA [Concomitant]
     Active Substance: DULOXETINE HYDROCHLORIDE
     Dosage: UNK
     Dates: start: 2008
  6. VALSARTAN. [Concomitant]
     Active Substance: VALSARTAN
     Dosage: UNK
     Dates: start: 2008
  7. ALLEGRA [Concomitant]
     Active Substance: FEXOFENADINE HYDROCHLORIDE
     Dosage: UNK
     Dates: start: 2008
  8. CELECOXIB. [Suspect]
     Active Substance: CELECOXIB
     Dosage: 200 MG, 2X/DAY
     Route: 048
     Dates: start: 201611, end: 201702
  9. CELECOXIB. [Suspect]
     Active Substance: CELECOXIB
     Dosage: 200 MG, 2X/DAY
     Route: 048
     Dates: start: 201609, end: 201701
  10. ALLEGRA-D [Concomitant]
     Active Substance: FEXOFENADINE\PSEUDOEPHEDRINE
     Dosage: UNK
     Dates: start: 2008
  11. VITAMIN D [Concomitant]
     Active Substance: CHOLECALCIFEROL
     Dosage: UNK
     Dates: start: 2008
  12. PLAQUENIL [Concomitant]
     Active Substance: HYDROXYCHLOROQUINE SULFATE
     Dosage: UNK
     Dates: start: 2008
  13. TOPROL XL [Concomitant]
     Active Substance: METOPROLOL SUCCINATE
     Dosage: UNK
     Dates: start: 2008
  14. SYNTHROID [Concomitant]
     Active Substance: LEVOTHYROXINE SODIUM
     Dosage: UNK
     Dates: start: 2008
  15. METHOTREXATE. [Concomitant]
     Active Substance: METHOTREXATE
     Dosage: UNK
     Dates: start: 2008

REACTIONS (1)
  - Drug ineffective [Unknown]

NARRATIVE: CASE EVENT DATE: 201601
